FAERS Safety Report 8606234-4 (Version None)
Quarter: 2012Q3

REPORT INFORMATION
  Report Type: 
  Country: None (occurrence: None)
  Receive Date: 20120820
  Receipt Date: 19940404
  Transmission Date: 20120928
  Serious: Yes (Hospitalization)
  Sender: FDA-Public Use
  Company Number: US-ROCHE-1101885

PATIENT
  Age: 60 Year
  Sex: Female

DRUGS (8)
  1. HEPARIN [Concomitant]
  2. COUMADIN [Concomitant]
  3. ISORDIL [Concomitant]
  4. ISORDIL [Concomitant]
  5. ACTIVASE [Suspect]
     Indication: ACUTE MYOCARDIAL INFARCTION
     Dates: start: 19930902
  6. ASPIRIN [Concomitant]
  7. NORFLOXACIN [Concomitant]
  8. HUMULIN R [Concomitant]

REACTIONS (6)
  - ANAEMIA [None]
  - PYREXIA [None]
  - HYPOTENSION [None]
  - BRADYCARDIA [None]
  - ELECTROLYTE IMBALANCE [None]
  - URINARY TRACT INFECTION [None]
